FAERS Safety Report 14281442 (Version 2)
Quarter: 2020Q1

REPORT INFORMATION
  Report Type: Spontaneous
  Country: US (occurrence: US)
  Receive Date: 20171213
  Receipt Date: 20200310
  Transmission Date: 20200409
  Serious: Yes (Death, Hospitalization, Other)
  Sender: FDA-Public Use
  Company Number: US-009507513-1712USA006295

PATIENT
  Sex: Male

DRUGS (1)
  1. JANUVIA [Suspect]
     Active Substance: SITAGLIPTIN PHOSPHATE
     Indication: TYPE 2 DIABETES MELLITUS
     Dosage: 100 MG, ONCE DAILY
     Route: 048
     Dates: start: 20120123, end: 201511

REACTIONS (11)
  - Metastases to gallbladder [Unknown]
  - Ductal adenocarcinoma of pancreas [Fatal]
  - Abnormal loss of weight [Unknown]
  - Lymphadenopathy [Unknown]
  - Metastases to liver [Unknown]
  - Spinal osteoarthritis [Unknown]
  - Metastases to lung [Unknown]
  - Nephrolithiasis [Unknown]
  - Joint ankylosis [Unknown]
  - Urinary tract infection [Unknown]
  - Spondylolisthesis [Unknown]

NARRATIVE: CASE EVENT DATE: 201506
